FAERS Safety Report 21541460 (Version 1)
Quarter: 2022Q4

REPORT INFORMATION
  Report Type: Spontaneous
  Country: US (occurrence: US)
  Receive Date: 20221102
  Receipt Date: 20221102
  Transmission Date: 20230112
  Serious: Yes (Hospitalization, Other)
  Sender: FDA-Public Use
  Company Number: US-PFIZER INC-PV202200092401

PATIENT
  Age: 60 Year
  Sex: Female

DRUGS (6)
  1. IBRANCE [Suspect]
     Active Substance: PALBOCICLIB
     Indication: Palliative care
     Dosage: 100 MG, CYCLIC (IBRANCE 100 MG PO DAYS 1-21 OF 28 DAY CYCLE)
     Route: 048
     Dates: start: 20200403, end: 202012
  2. IBRANCE [Suspect]
     Active Substance: PALBOCICLIB
     Indication: Metastasis
     Dosage: UNK
     Dates: start: 202102, end: 202107
  3. IBRANCE [Suspect]
     Active Substance: PALBOCICLIB
     Indication: Headache
     Dosage: UNK
     Dates: start: 20210826
  4. IBRANCE [Suspect]
     Active Substance: PALBOCICLIB
     Indication: Lung neoplasm malignant
  5. IBRANCE [Suspect]
     Active Substance: PALBOCICLIB
     Indication: Neoplasm malignant
  6. FASLODEX [Concomitant]
     Active Substance: FULVESTRANT
     Dosage: UNK
     Dates: start: 202004

REACTIONS (8)
  - Hypoglycaemia [Unknown]
  - Troponin increased [Unknown]
  - Headache [Unknown]
  - Dizziness [Unknown]
  - Nausea [Unknown]
  - Vomiting [Unknown]
  - Pulmonary mass [Unknown]
  - Platelet count decreased [Unknown]

NARRATIVE: CASE EVENT DATE: 20200701
